FAERS Safety Report 19493155 (Version 1)
Quarter: 2021Q3

REPORT INFORMATION
  Report Type: Spontaneous
  Country: GB (occurrence: GB)
  Receive Date: 20210705
  Receipt Date: 20210705
  Transmission Date: 20211014
  Serious: Yes (Hospitalization)
  Sender: FDA-Public Use
  Company Number: GB-PFIZER INC-2021776369

PATIENT
  Age: 41 Year
  Sex: Male

DRUGS (12)
  1. CLINDAMYCIN. [Suspect]
     Active Substance: CLINDAMYCIN
     Dosage: UNK
  2. MOXIFLOXACIN. [Suspect]
     Active Substance: MOXIFLOXACIN
     Dosage: UNK
  3. BICTEGRAVIR [Concomitant]
     Active Substance: BICTEGRAVIR
     Indication: HIV INFECTION
     Dosage: UNK
     Dates: start: 2021
  4. SULPHADIAZINE [SULFADIAZINE] [Concomitant]
     Active Substance: SULFADIAZINE
     Indication: TOXOPLASMOSIS
     Dates: start: 202104
  5. LEVOFOLINIC ACID [Concomitant]
     Active Substance: LEVOLEUCOVORIN
     Indication: TOXOPLASMOSIS
     Dates: start: 202104
  6. OMEPRAZOLE. [Concomitant]
     Active Substance: OMEPRAZOLE
     Indication: GASTRITIS
     Dates: start: 202104
  7. TENOFOVIR ALAFENAMIDE [Concomitant]
     Active Substance: TENOFOVIR ALAFENAMIDE
     Indication: HIV INFECTION
     Dates: start: 202103
  8. PYRIMETHAMINE [Concomitant]
     Active Substance: PYRIMETHAMINE
     Indication: TOXOPLASMOSIS
     Dates: start: 2021
  9. EMTRICITABINE [Concomitant]
     Active Substance: EMTRICITABINE
     Indication: HIV INFECTION
     Dates: start: 202105
  10. ASTRAZENECA COVID?19 VACCINE [Suspect]
     Active Substance: AZD-1222
     Dosage: DOSE 1
     Dates: start: 20210507
  11. IMMUNOGLOBULINS NOS [Concomitant]
     Active Substance: IMMUNE GLOBULIN NOS
     Dosage: UNK
  12. PREGABALIN. [Concomitant]
     Active Substance: PREGABALIN
     Indication: NEURALGIA
     Dates: start: 202104, end: 202106

REACTIONS (5)
  - Hypercoagulation [Unknown]
  - Haemorrhage [Unknown]
  - Dyspnoea [Unknown]
  - Hypoxia [Unknown]
  - Pulmonary venous thrombosis [Recovering/Resolving]

NARRATIVE: CASE EVENT DATE: 20210611
